FAERS Safety Report 6974447-3 (Version None)
Quarter: 2010Q3

REPORT INFORMATION
  Report Type: 
  Country: None (occurrence: None)
  Receive Date: 20100909
  Receipt Date: 20080410
  Transmission Date: 20110219
  Serious: No
  Sender: FDA-Public Use
  Company Number: US-WYE-H03565708

PATIENT
  Sex: Male

DRUGS (5)
  1. PROTONIX [Suspect]
     Indication: GASTROOESOPHAGEAL REFLUX DISEASE
     Route: 048
     Dates: start: 20040101
  2. PROPRANOLOL [Concomitant]
  3. VERAPAMIL HCL [Concomitant]
  4. RISPERDAL [Concomitant]
  5. KLONOPIN [Concomitant]

REACTIONS (1)
  - DRUG SCREEN POSITIVE [None]
